FAERS Safety Report 7984474 (Version 3)
Quarter: 2012Q4

REPORT INFORMATION
  Report Type: Spontaneous
  Country: US (occurrence: None)
  Receive Date: 20110523
  Receipt Date: 20120823
  Transmission Date: 20130627
  Serious: Yes (Other)
  Sender: FDA-Public Use
  Company Number: 2011US0123

PATIENT
  Age: 14 Year
  Sex: Female
  Weight: 44.4 kg

DRUGS (10)
  1. KINERET [Suspect]
     Indication: JUVENILE ARTHRITIS
     Dosage: 100 MG, 1 IN 1 D, SUBCUTANEOUS
     Route: 058
     Dates: start: 20110422, end: 20110428
  2. ACETAMINOPHEN [Concomitant]
  3. ALBUMIN (HUMAN) [Concomitant]
  4. ALTEPLASE (ALTEPLASE) [Concomitant]
  5. METHYLPREDNISOLONE [Concomitant]
  6. ONDANSETRON [Concomitant]
  7. PANTOPRAZOLE [Concomitant]
  8. RANTIDINE (RANTIDINE) [Concomitant]
  9. RASBURICASE (RASBURICASE) [Concomitant]
  10. SODIUM POLYSTYRENE SULFONATE (SODIUM POLYSTYRENE SULFONATE) [Concomitant]

REACTIONS (5)
  - Retinal infarction [None]
  - Fluid overload [None]
  - Drug ineffective [None]
  - Dyspnoea [None]
  - Cardiomegaly [None]
